FAERS Safety Report 24278387 (Version 1)
Quarter: 2024Q3

REPORT INFORMATION
  Report Type: Spontaneous
  Country: US (occurrence: US)
  Receive Date: 20240903
  Receipt Date: 20240903
  Transmission Date: 20241017
  Serious: No
  Sender: ABBVIE
  Company Number: US-ABBVIE-5894913

PATIENT
  Sex: Female

DRUGS (2)
  1. SYNTHROID [Suspect]
     Active Substance: LEVOTHYROXINE SODIUM
     Indication: Hypothyroidism
     Route: 048
  2. SYNTHROID [Suspect]
     Active Substance: LEVOTHYROXINE SODIUM
     Indication: Hypothyroidism
     Dosage: THE PATIENT CUT DOWN THE DOSE.
     Route: 048

REACTIONS (5)
  - Ventricular extrasystoles [Recovering/Resolving]
  - Headache [Unknown]
  - Abdominal discomfort [Unknown]
  - Insomnia [Unknown]
  - Intentional product misuse [Unknown]
